FAERS Safety Report 13400692 (Version 1)
Quarter: 2017Q2

REPORT INFORMATION
  Report Type: Spontaneous
  Country: FR (occurrence: FR)
  Receive Date: 20170404
  Receipt Date: 20170404
  Transmission Date: 20170830
  Serious: Yes (Life-Threatening, Other)
  Sender: FDA-Public Use
  Company Number: FR-ASTRAZENECA-2017SE34426

PATIENT
  Age: 70 Year
  Sex: Female

DRUGS (2)
  1. CRESTOR [Suspect]
     Active Substance: ROSUVASTATIN CALCIUM
     Dosage: 5.0MG UNKNOWN
     Route: 048
     Dates: end: 201609
  2. TAHOR [Suspect]
     Active Substance: ATORVASTATIN CALCIUM
     Dosage: 80.0MG UNKNOWN
     Route: 065
     Dates: start: 201609, end: 201612

REACTIONS (2)
  - Blood creatine phosphokinase increased [Unknown]
  - Acute coronary syndrome [Unknown]

NARRATIVE: CASE EVENT DATE: 201609
